FAERS Safety Report 6243675-7 (Version None)
Quarter: 2009Q2

REPORT INFORMATION
  Report Type: 
  Country: None (occurrence: None)
  Receive Date: 20090618
  Receipt Date: 20090317
  Transmission Date: 20091009
  Serious: Yes (Other)
  Sender: FDA-Public Use
  Company Number: CIP09000330

PATIENT
  Age: 67 Year
  Sex: Female

DRUGS (6)
  1. ACTONEL [Suspect]
     Dosage: 35 MG ONCE WEEKLY, ORAL
     Route: 048
     Dates: start: 20050101
  2. MULTIVITAMIN /00097801/ (ASCORBIC ACID, CALCIUM PANTOTHENATE, ERGOCALC [Concomitant]
  3. NORPRAMINE (IMIPRAMINE HYDROCHLORIDE) [Concomitant]
  4. DEXEDRINE [Concomitant]
  5. ATENOLOL [Concomitant]
  6. DIAZEPAM [Concomitant]

REACTIONS (6)
  - BONE EROSION [None]
  - DENTAL FISTULA [None]
  - ORAL INFECTION [None]
  - OSTEONECROSIS [None]
  - PURULENT DISCHARGE [None]
  - TOOTH DISORDER [None]
